FAERS Safety Report 9358640 (Version 1)
Quarter: 2013Q2

REPORT INFORMATION
  Report Type: Spontaneous
  Country: FR (occurrence: FR)
  Receive Date: 20130620
  Receipt Date: 20130620
  Transmission Date: 20140414
  Serious: Yes (Other)
  Sender: FDA-Public Use
  Company Number: PHHY2013FR061014

PATIENT
  Age: 92 Year
  Sex: Female

DRUGS (5)
  1. MINI-SINTROM [Suspect]
     Dosage: 0.25 MG, QD
     Route: 048
     Dates: start: 20130331, end: 20130402
  2. MINI-SINTROM [Suspect]
     Dosage: 0.25 MG, QOD
     Route: 048
     Dates: start: 20130404
  3. CEFTRIAXONE SODIUM [Suspect]
     Indication: SEPSIS
     Dosage: 1 G, QD
     Route: 042
     Dates: start: 20130331, end: 20130409
  4. CARDENSIEL [Concomitant]
     Dosage: 1.25 MG, UNK
  5. LASILIX [Concomitant]
     Dosage: 20 MG, UNK

REACTIONS (1)
  - International normalised ratio increased [Recovered/Resolved]
